FAERS Safety Report 11834804 (Version 3)
Quarter: 2016Q2

REPORT INFORMATION
  Report Type: Spontaneous
  Country: US (occurrence: US)
  Receive Date: 20151215
  Receipt Date: 20160630
  Transmission Date: 20160815
  Serious: Yes (Hospitalization)
  Sender: FDA-Public Use
  Company Number: US-JNJFOC-20151200676

PATIENT
  Age: 66 Year
  Sex: Male

DRUGS (3)
  1. XARELTO [Suspect]
     Active Substance: RIVAROXABAN
     Indication: BLOOD CHOLESTEROL INCREASED
     Route: 048
     Dates: start: 20131126, end: 20131225
  2. XARELTO [Suspect]
     Active Substance: RIVAROXABAN
     Indication: BLOOD CHOLESTEROL INCREASED
     Route: 048
     Dates: end: 20140110
  3. MOBIC [Suspect]
     Active Substance: MELOXICAM
     Indication: PRODUCT USED FOR UNKNOWN INDICATION
     Route: 065
     Dates: end: 201401

REACTIONS (3)
  - Gastrointestinal haemorrhage [Recovering/Resolving]
  - Product use issue [Unknown]
  - Off label use [Unknown]

NARRATIVE: CASE EVENT DATE: 2013
